FAERS Safety Report 7978048-X (Version None)
Quarter: 2011Q4

REPORT INFORMATION
  Report Type: 
  Country: None (occurrence: None)
  Receive Date: 20111214
  Receipt Date: 20111206
  Transmission Date: 20120403
  Serious: No
  Sender: FDA-Public Use
  Company Number: US-BIOGENIDEC-2011BI046272

PATIENT
  Age: 27 Year
  Sex: Male

DRUGS (3)
  1. AVONEX [Suspect]
     Indication: MULTIPLE SCLEROSIS
     Route: 030
     Dates: start: 20111201
  2. AVONEX [Suspect]
     Route: 030
     Dates: start: 20100720
  3. BENADRYL [Concomitant]
     Indication: PREMEDICATION

REACTIONS (4)
  - MOOD ALTERED [None]
  - DEPRESSED MOOD [None]
  - HEART RATE INCREASED [None]
  - ANGER [None]
